FAERS Safety Report 18533496 (Version 2)
Quarter: 2020Q4

REPORT INFORMATION
  Report Type: Spontaneous
  Country: EG (occurrence: EG)
  Receive Date: 20201123
  Receipt Date: 20201203
  Transmission Date: 20210114
  Serious: Yes (Other)
  Sender: FDA-Public Use
  Company Number: EG-NOVOPROD-768093

PATIENT

DRUGS (5)
  1. LANTUS [Concomitant]
     Active Substance: INSULIN GLARGINE
     Indication: DIABETES MELLITUS
     Dosage: 15-20 IU/NIGHT, 2 OR 3 YEARS AGO.
     Route: 065
  2. LEPICOL [BIFIDOBACTERIUM BIFIDUM;INULIN;LACTOBACILLUS ACIDOPHILUS;LACT [Concomitant]
     Indication: HYPERLIPIDAEMIA
     Dosage: 1 CAP./DAY, MORE THAN 10 YEARS AGO.
     Route: 048
  3. ELTROXIN [Concomitant]
     Active Substance: LEVOTHYROXINE
     Indication: THYROIDECTOMY
     Dosage: 2 TAB./DAY FOR 4 DAYS A WEEK + 1.5 TAB./DAY FOR THE OTHER 3 DAYS
     Route: 065
     Dates: start: 2007
  4. LIPOMEDIZEN [Concomitant]
     Indication: HYPERLIPIDAEMIA
     Dosage: 1 CAP./DAY, MORE THAN 10 YEARS AGO, MORE THAN 10 YEARS AGO
     Route: 065
  5. ACTRAPID [Suspect]
     Active Substance: INSULIN HUMAN
     Indication: DIABETES MELLITUS
     Dosage: 75 IU, QD (30IU +30 IU + 15 IU ) AT EACH MEAL)
     Route: 065
     Dates: start: 2017

REACTIONS (1)
  - Cataract [Not Recovered/Not Resolved]
